FAERS Safety Report 8413213-9 (Version None)
Quarter: 2012Q2

REPORT INFORMATION
  Report Type: 
  Country: None (occurrence: None)
  Receive Date: 20120605
  Receipt Date: 20120530
  Transmission Date: 20120825
  Serious: No
  Sender: FDA-Public Use
  Company Number: US-PFIZER INC-2012073869

PATIENT
  Sex: Female
  Weight: 85.3 kg

DRUGS (6)
  1. TRAZODONE [Concomitant]
     Indication: DEPRESSION
     Dosage: 50 MG,DAILY
  2. CITALOPRAM [Concomitant]
     Indication: DEPRESSION
     Dosage: 40 MG,DAILY
  3. MIRAPEX [Concomitant]
     Indication: RESTLESS LEGS SYNDROME
     Dosage: 0.75 MG, DAILY
  4. LANSOPRAZOLE [Concomitant]
     Indication: GASTROOESOPHAGEAL REFLUX DISEASE
     Dosage: UNK, DAILY
  5. TOPAMAX [Concomitant]
     Indication: MIGRAINE
     Dosage: 25 MG, DAILY
  6. PREMPRO [Suspect]
     Indication: MENOPAUSE
     Dosage: 0.625/2.5 MG DAILY
     Route: 048
     Dates: start: 20110101

REACTIONS (3)
  - DRUG ADMINISTRATION ERROR [None]
  - ANXIETY [None]
  - PANIC REACTION [None]
